FAERS Safety Report 9914664 (Version 1)
Quarter: 2014Q1

REPORT INFORMATION
  Report Type: Spontaneous
  Country: CN (occurrence: CN)
  Receive Date: 20140220
  Receipt Date: 20140220
  Transmission Date: 20141002
  Serious: Yes (Other)
  Sender: FDA-Public Use
  Company Number: CN-ELI_LILLY_AND_COMPANY-CN201402005822

PATIENT
  Sex: Female

DRUGS (2)
  1. GEMCITABINE HYDROCHLORIDE [Suspect]
     Indication: BREAST CANCER METASTATIC
     Dosage: 1000 MG/M2, CYCLICAL
     Route: 042
  2. CISPLATIN [Concomitant]
     Indication: BREAST CANCER
     Dosage: 25 MG/M2, CYCLICAL
     Route: 042

REACTIONS (1)
  - Gastrointestinal disorder [Unknown]
